FAERS Safety Report 14075055 (Version 1)
Quarter: 2017Q4

REPORT INFORMATION
  Report Type: Spontaneous
  Country: BE (occurrence: BE)
  Receive Date: 20171010
  Receipt Date: 20171010
  Transmission Date: 20180321
  Serious: Yes (Disabling)
  Sender: FDA-Public Use
  Company Number: BE-B. BRAUN MEDICAL INC.-2029531

PATIENT
  Age: 39 Year
  Sex: Female
  Weight: 75 kg

DRUGS (5)
  1. MARCAINE [Suspect]
     Active Substance: BUPIVACAINE HYDROCHLORIDE
     Route: 031
     Dates: start: 20170818
  2. HYASON (HYALURONIDASE) [Suspect]
     Active Substance: HYALURONIDASE
     Route: 031
     Dates: start: 20170818
  3. SERTRALINE [Concomitant]
     Active Substance: SERTRALINE HYDROCHLORIDE
  4. LIDOCAINE. [Suspect]
     Active Substance: LIDOCAINE
     Indication: VITRECTOMY
     Route: 031
     Dates: start: 20170818
  5. MAXITROL [Concomitant]
     Active Substance: DEXAMETHASONE\NEOMYCIN SULFATE\POLYMYXIN B SULFATE

REACTIONS (2)
  - Product use issue [Not Recovered/Not Resolved]
  - Blindness [Not Recovered/Not Resolved]

NARRATIVE: CASE EVENT DATE: 20170818
